FAERS Safety Report 8615481-7 (Version None)
Quarter: 2012Q3

REPORT INFORMATION
  Report Type: 
  Country: None (occurrence: None)
  Receive Date: 20120823
  Receipt Date: 20120815
  Transmission Date: 20120928
  Serious: Yes (Other)
  Sender: FDA-Public Use
  Company Number: US-JNJFOC-20120808967

PATIENT
  Age: 74 Year
  Sex: Female
  Weight: 77.1 kg

DRUGS (2)
  1. NICOTROL [Suspect]
     Indication: SMOKING CESSATION THERAPY
     Dosage: 3 CARTRIDGES ONCE A DAY
     Route: 055
     Dates: start: 20070101, end: 20070101
  2. NICOTROL [Suspect]
     Route: 055
     Dates: start: 20110101, end: 20110101

REACTIONS (2)
  - CONVULSION [None]
  - BEDRIDDEN [None]
